FAERS Safety Report 17616697 (Version 1)
Quarter: 2020Q1

REPORT INFORMATION
  Report Type: Spontaneous
  Country: US (occurrence: US)
  Receive Date: 20200331
  Receipt Date: 20200331
  Transmission Date: 20200409
  Serious: Yes (Hospitalization)
  Sender: FDA-Public Use
  Company Number: None

PATIENT
  Age: 62 Year
  Sex: Female

DRUGS (14)
  1. FUROSEMIDE. [Concomitant]
     Active Substance: FUROSEMIDE
  2. MELATONIN [Concomitant]
     Active Substance: MELATONIN
  3. WARFARIN [Concomitant]
     Active Substance: WARFARIN
  4. ACETAMINOPHE [Concomitant]
  5. ADVAIR DISKUS [Concomitant]
     Active Substance: FLUTICASONE PROPIONATE\SALMETEROL XINAFOATE
  6. VITAMIN D3 [Concomitant]
     Active Substance: CHOLECALCIFEROL
  7. SILDENAFIL. [Concomitant]
     Active Substance: SILDENAFIL
  8. DICLOFENAC SODIUM GEL [Concomitant]
     Active Substance: DICLOFENAC SODIUM
  9. K0TAB [Concomitant]
  10. SPIRIVA RESPIMAT [Concomitant]
     Active Substance: TIOTROPIUM BROMIDE
  11. UPTRAVI [Concomitant]
     Active Substance: SELEXIPAG
  12. VENTOLIN HFA [Concomitant]
     Active Substance: ALBUTEROL SULFATE
  13. ALBUTEROL NEB SOLN [Concomitant]
  14. OPSUMIT [Suspect]
     Active Substance: MACITENTAN
     Indication: PULMONARY EMBOLISM
     Route: 048
     Dates: start: 20151028

REACTIONS (1)
  - Knee arthroplasty [None]

NARRATIVE: CASE EVENT DATE: 20200225
